FAERS Safety Report 19867180 (Version 5)
Quarter: 2022Q1

REPORT INFORMATION
  Report Type: Report from Study
  Country: CN (occurrence: CN)
  Receive Date: 20210921
  Receipt Date: 20220124
  Transmission Date: 20220423
  Serious: Yes (Other)
  Sender: FDA-Public Use
  Company Number: CN-NOVARTISPH-NVSC2020CN202199

PATIENT
  Age: 41 Year
  Sex: Male

DRUGS (16)
  1. ENTRESTO [Suspect]
     Active Substance: SACUBITRIL\VALSARTAN
     Indication: Cardiac failure chronic
     Dosage: 50 MG, UNKNOWN
     Route: 048
     Dates: start: 20200409, end: 20200410
  2. ENTRESTO [Suspect]
     Active Substance: SACUBITRIL\VALSARTAN
     Dosage: 50 MG, UNKNOWN
     Route: 048
     Dates: start: 20200409, end: 20200409
  3. ENTRESTO [Suspect]
     Active Substance: SACUBITRIL\VALSARTAN
     Dosage: 25 MG, UNKNOWN
     Route: 048
     Dates: start: 20200410, end: 20200412
  4. ENTRESTO [Suspect]
     Active Substance: SACUBITRIL\VALSARTAN
     Dosage: 50 MG, UNKNOWN
     Route: 048
     Dates: start: 20200413, end: 2020
  5. TRIMETAZIDINE DIHYDROCHLORIDE [Concomitant]
     Active Substance: TRIMETAZIDINE DIHYDROCHLORIDE
     Indication: Cardiac failure chronic
     Dosage: 35 MG, UNKNOWN
     Route: 048
     Dates: start: 20200409, end: 20200420
  6. CEFOPERAZONE SODIUM\SULBACTAM SODIUM [Concomitant]
     Active Substance: CEFOPERAZONE SODIUM\SULBACTAM SODIUM
     Indication: Cardiac failure chronic
     Dosage: 3 G, UNKNOWN
     Route: 042
     Dates: start: 20200409, end: 20200419
  7. TICAGRELOR [Concomitant]
     Active Substance: TICAGRELOR
     Indication: Cardiac failure chronic
     Dosage: 90 MG, UNKNOWN
     Route: 048
     Dates: start: 20200409, end: 202009
  8. ROSUVASTATIN CALCIUM [Concomitant]
     Active Substance: ROSUVASTATIN CALCIUM
     Indication: Cardiac failure chronic
     Dosage: 10 MG, UNKNOWN
     Route: 048
     Dates: start: 20200409, end: 202009
  9. RABEPRAZOLE SODIUM [Concomitant]
     Active Substance: RABEPRAZOLE SODIUM
     Indication: Pre-existing disease
     Dosage: 20 MG, UNKNOWN
     Route: 048
     Dates: start: 20200409, end: 202009
  10. DIGOXIN [Concomitant]
     Active Substance: DIGOXIN
     Indication: Cardiac failure chronic
     Dosage: 0.125 MG, UNKNOWN
     Route: 048
     Dates: start: 20200410, end: 202009
  11. ASPIRIN [Concomitant]
     Active Substance: ASPIRIN
     Indication: Cardiac failure chronic
     Dosage: 100 MG
     Route: 048
     Dates: start: 20200410, end: 202009
  12. METOPROLOL SUCCINATE [Concomitant]
     Active Substance: METOPROLOL SUCCINATE
     Indication: Pre-existing disease
     Dosage: 23.75 MG
     Route: 048
     Dates: start: 20200409, end: 20200411
  13. METHYLCOBALAMIN [Concomitant]
     Active Substance: METHYLCOBALAMIN
     Indication: Pre-existing disease
     Dosage: 500 UG
     Route: 048
     Dates: start: 20200418, end: 202009
  14. DALTEPARIN SODIUM [Concomitant]
     Active Substance: DALTEPARIN SODIUM
     Indication: Cardiac failure chronic
     Dosage: 500 U
     Route: 042
     Dates: start: 20200409, end: 20200414
  15. DIAZEPAM [Concomitant]
     Active Substance: DIAZEPAM
     Indication: Cardiac failure chronic
     Dosage: 2.5 MG, UNKNOWN
     Route: 048
     Dates: start: 20200409, end: 20200418
  16. FUROSEMIDE [Concomitant]
     Active Substance: FUROSEMIDE
     Indication: Cardiac failure chronic
     Dosage: 20 MG, UNKNOWN
     Route: 042
     Dates: start: 20200409, end: 20200412

REACTIONS (7)
  - Subarachnoid haemorrhage [Not Recovered/Not Resolved]
  - Hydrocephalus [Recovering/Resolving]
  - Hypertension [Not Recovered/Not Resolved]
  - Contusion [Not Recovered/Not Resolved]
  - Wrong technique in product usage process [Recovered/Resolved]
  - Wrong technique in product usage process [Recovered/Resolved]
  - Wrong technique in product usage process [Recovered/Resolved]

NARRATIVE: CASE EVENT DATE: 20200409
